FAERS Safety Report 14581093 (Version 1)
Quarter: 2018Q1

REPORT INFORMATION
  Report Type: Spontaneous
  Country: US (occurrence: US)
  Receive Date: 20180228
  Receipt Date: 20180228
  Transmission Date: 20180509
  Serious: No
  Sender: FDA-Public Use
  Company Number: US-PFIZER INC-2018084611

PATIENT
  Sex: Male

DRUGS (2)
  1. LYRICA [Suspect]
     Active Substance: PREGABALIN
     Indication: SPINAL CORD INJURY
     Dosage: 50 MG
  2. LYRICA [Suspect]
     Active Substance: PREGABALIN
     Indication: NEURALGIA
     Dosage: 25 MG, A DAY AS NEEDED

REACTIONS (5)
  - Somnolence [Unknown]
  - Lethargy [Unknown]
  - Drug ineffective [Unknown]
  - Intentional product misuse [Unknown]
  - Gait disturbance [Unknown]
